FAERS Safety Report 5825887-7 (Version None)
Quarter: 2008Q3

REPORT INFORMATION
  Report Type: 
  Country: None (occurrence: None)
  Receive Date: 20080729
  Receipt Date: 20080717
  Transmission Date: 20090109
  Serious: Yes (Congenital Anomaly)
  Sender: FDA-Public Use
  Company Number: GB-GILEAD-2008-0017378

PATIENT
  Sex: Female
  Weight: 3.3 kg

DRUGS (3)
  1. TRUVADA [Suspect]
     Route: 064
  2. KALETRA [Suspect]
     Route: 064
  3. ZIDOVUDINE [Suspect]
     Route: 064

REACTIONS (1)
  - CLINODACTYLY [None]
